FAERS Safety Report 11433588 (Version 2)
Quarter: 2015Q4

REPORT INFORMATION
  Report Type: Spontaneous
  Country: US (occurrence: US)
  Receive Date: 20150831
  Receipt Date: 20151015
  Transmission Date: 20160304
  Serious: Yes (Other)
  Sender: FDA-Public Use
  Company Number: US-THE MEDICINES COMPANY-US-MDCO-15-00292

PATIENT
  Age: 58 Year
  Sex: Male

DRUGS (37)
  1. VERSED [Concomitant]
     Active Substance: MIDAZOLAM HYDROCHLORIDE
     Route: 042
  2. REOPRO [Concomitant]
     Active Substance: ABCIXIMAB
     Dosage: 0.125 MCG/KG/MIN
     Route: 041
  3. NITRO [Concomitant]
     Active Substance: NITROGLYCERIN
     Indication: VASODILATATION
     Route: 022
  4. ANGIOMAX [Suspect]
     Active Substance: BIVALIRUDIN
     Indication: PERCUTANEOUS CORONARY INTERVENTION
     Dosage: 0.75MG/KG (16ML)
     Route: 040
  5. ANGIOMAX [Suspect]
     Active Substance: BIVALIRUDIN
     Route: 040
  6. VERSED [Concomitant]
     Active Substance: MIDAZOLAM HYDROCHLORIDE
     Route: 042
  7. MORPHINE [Concomitant]
     Active Substance: MORPHINE
     Route: 042
  8. ADENOSINE. [Concomitant]
     Active Substance: ADENOSINE
     Route: 022
  9. ASPIRIN. [Concomitant]
     Active Substance: ASPIRIN
     Indication: PRODUCT USED FOR UNKNOWN INDICATION
     Route: 048
  10. VERSED [Concomitant]
     Active Substance: MIDAZOLAM HYDROCHLORIDE
     Indication: ANAESTHESIA PROCEDURE
     Route: 042
  11. FENTANYL. [Concomitant]
     Active Substance: FENTANYL
     Route: 042
  12. MORPHINE [Concomitant]
     Active Substance: MORPHINE
     Route: 042
  13. ANGIOMAX [Suspect]
     Active Substance: BIVALIRUDIN
     Dosage: 1.75 MG/KG/HR (37ML/HR)
     Route: 041
  14. VERSED [Concomitant]
     Active Substance: MIDAZOLAM HYDROCHLORIDE
     Route: 042
  15. NITRO [Concomitant]
     Active Substance: NITROGLYCERIN
     Route: 022
  16. EFFIENT [Concomitant]
     Active Substance: PRASUGREL HYDROCHLORIDE
     Indication: PRODUCT USED FOR UNKNOWN INDICATION
     Route: 048
  17. VERSED [Concomitant]
     Active Substance: MIDAZOLAM HYDROCHLORIDE
     Route: 042
  18. VERSED [Concomitant]
     Active Substance: MIDAZOLAM HYDROCHLORIDE
     Route: 042
  19. FENTANYL. [Concomitant]
     Active Substance: FENTANYL
     Indication: ANAESTHESIA PROCEDURE
     Route: 042
  20. FENTANYL. [Concomitant]
     Active Substance: FENTANYL
     Route: 042
  21. FENTANYL. [Concomitant]
     Active Substance: FENTANYL
     Route: 042
  22. FENTANYL. [Concomitant]
     Active Substance: FENTANYL
     Route: 042
  23. ADENOSINE. [Concomitant]
     Active Substance: ADENOSINE
     Route: 022
  24. OXYGEN. [Concomitant]
     Active Substance: OXYGEN
     Indication: PRODUCT USED FOR UNKNOWN INDICATION
     Dosage: 2 L/MIN
     Route: 045
  25. ANGIOMAX [Suspect]
     Active Substance: BIVALIRUDIN
     Dosage: 1.75MG/KG/HR (37 ML/HR)
     Route: 041
     Dates: end: 20141224
  26. VERSED [Concomitant]
     Active Substance: MIDAZOLAM HYDROCHLORIDE
     Route: 042
  27. FENTANYL. [Concomitant]
     Active Substance: FENTANYL
     Route: 042
  28. FENTANYL. [Concomitant]
     Active Substance: FENTANYL
     Route: 042
  29. ADENOSINE. [Concomitant]
     Active Substance: ADENOSINE
     Indication: PERCUTANEOUS CORONARY INTERVENTION
     Dosage: 140 MCG/KG/MIN
     Route: 041
  30. REOPRO [Concomitant]
     Active Substance: ABCIXIMAB
     Indication: PERCUTANEOUS CORONARY INTERVENTION
     Route: 040
  31. INTEGRILIN [Suspect]
     Active Substance: EPTIFIBATIDE
     Indication: PERCUTANEOUS CORONARY INTERVENTION
     Dosage: 180 MCG/KG
     Route: 040
  32. INTEGRILIN [Suspect]
     Active Substance: EPTIFIBATIDE
     Dosage: 2 MCG/KG/MIN
  33. INTEGRILIN [Suspect]
     Active Substance: EPTIFIBATIDE
     Dosage: 1 MCG/KG/MIN
  34. HEPARIN [Concomitant]
     Active Substance: HEPARIN SODIUM
     Indication: PERCUTANEOUS CORONARY INTERVENTION
     Dosage: 1600U/HR
  35. MORPHINE [Concomitant]
     Active Substance: MORPHINE
     Indication: MUSCULOSKELETAL PAIN
     Route: 042
  36. MORPHINE [Concomitant]
     Active Substance: MORPHINE
     Route: 042
  37. NITROGLYCERIN. [Concomitant]
     Active Substance: NITROGLYCERIN
     Indication: PERCUTANEOUS CORONARY INTERVENTION
     Dosage: 10 MCG/MIN

REACTIONS (6)
  - Acute myocardial infarction [Unknown]
  - Coronary artery thrombosis [Recovered/Resolved]
  - Vascular stent thrombosis [Recovered/Resolved]
  - Coronary no-reflow phenomenon [Unknown]
  - Bradycardia [Unknown]
  - Coagulation test abnormal [Unknown]

NARRATIVE: CASE EVENT DATE: 20141224
